FAERS Safety Report 25176892 (Version 2)
Quarter: 2025Q2

REPORT INFORMATION
  Report Type: Spontaneous
  Country: US (occurrence: US)
  Receive Date: 20250409
  Receipt Date: 20250623
  Transmission Date: 20250716
  Serious: No
  Sender: BRISTOL-MYERS SQUIBB COMPANY
  Company Number: US-BRISTOL-MYERS SQUIBB COMPANY-2025-051847

PATIENT
  Age: 71 Year
  Sex: Male

DRUGS (2)
  1. REVLIMID [Suspect]
     Active Substance: LENALIDOMIDE
     Indication: Blood disorder
     Dosage: EVERY  EVENING
     Route: 048
  2. REVLIMID [Suspect]
     Active Substance: LENALIDOMIDE
     Dosage: STRENGTH: 5 MG, FREQUENCY: EVERY EVENING FOR 28 DAYS
     Route: 048

REACTIONS (4)
  - Peripheral swelling [Unknown]
  - Off label use [Unknown]
  - Inflammation [Unknown]
  - Post herpetic neuralgia [Unknown]
